FAERS Safety Report 8381855-5 (Version None)
Quarter: 2012Q2

REPORT INFORMATION
  Report Type: 
  Country: None (occurrence: None)
  Receive Date: 20120524
  Receipt Date: 20120515
  Transmission Date: 20120825
  Serious: Yes (Other)
  Sender: FDA-Public Use
  Company Number: US-BAYER-2012-025220

PATIENT
  Age: 24 Year
  Sex: Female
  Weight: 68.934 kg

DRUGS (1)
  1. MIRENA [Suspect]
     Indication: CONTRACEPTION
     Dosage: 20 MCG/24HR, CONT
     Route: 015
     Dates: start: 20100922, end: 20120307

REACTIONS (7)
  - DEVICE DISLOCATION [None]
  - GENITAL HAEMORRHAGE [None]
  - DEVICE BREAKAGE [None]
  - PRODUCT SHAPE ISSUE [None]
  - UTERINE PERFORATION [None]
  - UTERINE SPASM [None]
  - DEVICE DIFFICULT TO USE [None]
